FAERS Safety Report 7200159-7 (Version None)
Quarter: 2010Q4

REPORT INFORMATION
  Report Type: 
  Country: None (occurrence: None)
  Receive Date: 20101228
  Receipt Date: 20101228
  Transmission Date: 20110411
  Serious: Yes (Life-Threatening)
  Sender: FDA-Public Use
  Company Number: JP-JNJFOC-20101205300

PATIENT
  Age: 28 Year
  Sex: Female

DRUGS (5)
  1. TOPIRAMATE [Suspect]
     Indication: EPILEPSY
     Route: 048
  2. TEGRETOL [Interacting]
     Indication: EPILEPSY
     Route: 048
  3. DIAZEPAM [Interacting]
     Indication: EPILEPSY
     Route: 048
  4. PYRAZOLONE [Concomitant]
     Route: 048
  5. LENDORMIN D [Concomitant]
     Route: 048

REACTIONS (13)
  - ANTICONVULSANT DRUG LEVEL INCREASED [None]
  - BLOOD AMYLASE INCREASED [None]
  - BLOOD CREATINE PHOSPHOKINASE INCREASED [None]
  - BLOOD LACTATE DEHYDROGENASE INCREASED [None]
  - BLOOD POTASSIUM DECREASED [None]
  - DRUG INTERACTION [None]
  - DRY EYE [None]
  - EYE DISCHARGE [None]
  - EYE INFLAMMATION [None]
  - FEELING COLD [None]
  - MYALGIA [None]
  - NASOPHARYNGITIS [None]
  - WEIGHT DECREASED [None]
